FAERS Safety Report 8547869-7 (Version None)
Quarter: 2012Q3

REPORT INFORMATION
  Report Type: 
  Country: None (occurrence: None)
  Receive Date: 20120727
  Receipt Date: 20110721
  Transmission Date: 20120928
  Serious: No
  Sender: FDA-Public Use
  Company Number: US-ASTRAZENECA-2011SE43810

PATIENT
  Age: 32 Year
  Sex: Male
  Weight: 79.8 kg

DRUGS (3)
  1. SEROQUEL [Suspect]
     Indication: BIPOLAR DISORDER
     Route: 048
     Dates: end: 20110101
  2. WELLBUTRIN XL [Concomitant]
  3. SEROQUEL [Suspect]
     Dosage: 50 MG, HALF TABLET DAILY
     Route: 048
     Dates: start: 20110101

REACTIONS (2)
  - SEXUAL DYSFUNCTION [None]
  - WRONG TECHNIQUE IN DRUG USAGE PROCESS [None]
